FAERS Safety Report 18165692 (Version 1)
Quarter: 2020Q3

REPORT INFORMATION
  Report Type: Spontaneous
  Country: US (occurrence: US)
  Receive Date: 20200818
  Receipt Date: 20200818
  Transmission Date: 20201103
  Serious: Yes (Hospitalization, Disabling, Other)
  Sender: FDA-Public Use
  Company Number: US-PURDUE-USA-2020-0161486

PATIENT
  Sex: Male

DRUGS (3)
  1. TRAMADOL. [Suspect]
     Active Substance: TRAMADOL
     Indication: SPORTS INJURY
     Dosage: UNK
     Route: 048
  2. HYDROCODONE BITARTRATE AND ACETAMINOPHEN [Suspect]
     Active Substance: ACETAMINOPHEN\HYDROCODONE BITARTRATE
     Indication: SPORTS INJURY
     Dosage: UNK
     Route: 048
  3. BUPRENORPHINE TRANSDERMAL PATCH (SIMILAR TO NDA 21?306) [Suspect]
     Active Substance: BUPRENORPHINE
     Indication: SPORTS INJURY
     Dosage: UNK
     Route: 062

REACTIONS (9)
  - Learning disability [Not Recovered/Not Resolved]
  - Overdose [Recovered/Resolved with Sequelae]
  - Drug dependence [Unknown]
  - Paralysis [Not Recovered/Not Resolved]
  - Physiotherapy [Not Recovered/Not Resolved]
  - Surgery [Not Recovered/Not Resolved]
  - Occupational therapy [Not Recovered/Not Resolved]
  - Amnesia [Unknown]
  - Mental disability [Not Recovered/Not Resolved]
